FAERS Safety Report 19674724 (Version 2)
Quarter: 2021Q3

REPORT INFORMATION
  Report Type: Spontaneous
  Country: US (occurrence: US)
  Receive Date: 20210809
  Receipt Date: 20210810
  Transmission Date: 20211014
  Serious: No
  Sender: FDA-Public Use
  Company Number: US-BAYER-2021-184110

PATIENT
  Age: 42 Year
  Sex: Female

DRUGS (7)
  1. CLARITIN [Suspect]
     Active Substance: LORATADINE
     Indication: DYSPNOEA
     Dosage: UNK
     Route: 048
     Dates: start: 202003
  2. BREO ELLIPTA [Concomitant]
     Active Substance: FLUTICASONE FUROATE\VILANTEROL TRIFENATATE
     Dosage: 100MCG/25MCG
  3. FLONASE ALLERGY RELIEF [Concomitant]
     Active Substance: FLUTICASONE PROPIONATE
     Dosage: UNK
     Dates: start: 202003
  4. BREO ELLIPTA [Concomitant]
     Active Substance: FLUTICASONE FUROATE\VILANTEROL TRIFENATATE
     Dosage: UNK
     Dates: start: 202102
  5. CLARITIN [Suspect]
     Active Substance: LORATADINE
     Indication: MULTIPLE ALLERGIES
  6. PFIZER?BIONTECH COVID?19 VACCINE [Concomitant]
     Active Substance: TOZINAMERAN
     Dosage: UNK
     Dates: start: 20210713
  7. NASOCORT [Concomitant]
     Active Substance: BUDESONIDE
     Dosage: UNK
     Dates: start: 202003

REACTIONS (18)
  - Abdominal pain [None]
  - Endometriosis [None]
  - Myalgia [None]
  - Dyspnoea [None]
  - Pain [None]
  - Arthralgia [Not Recovered/Not Resolved]
  - Heart rate increased [None]
  - Tachycardia [None]
  - Dizziness [None]
  - Cough [None]
  - Chest discomfort [None]
  - Headache [Recovered/Resolved]
  - Oropharyngeal pain [None]
  - Injection site pain [None]
  - Heavy menstrual bleeding [Not Recovered/Not Resolved]
  - Blood pressure increased [None]
  - Abdominal pain [None]
  - Dyspnoea exertional [Recovering/Resolving]

NARRATIVE: CASE EVENT DATE: 202107
